FAERS Safety Report 21788880 (Version 2)
Quarter: 2022Q4

REPORT INFORMATION
  Report Type: Spontaneous
  Country: CZ (occurrence: CZ)
  Receive Date: 20221228
  Receipt Date: 20221230
  Transmission Date: 20230112
  Serious: Yes (Hospitalization)
  Sender: FDA-Public Use
  Company Number: CZ-MYLANLABS-2022M1142085

PATIENT
  Age: 46 Year
  Sex: Female

DRUGS (9)
  1. LYRICA [Interacting]
     Active Substance: PREGABALIN
     Indication: Generalised anxiety disorder
     Dosage: 300 MILLIGRAM, QD
     Route: 065
  2. LYRICA [Interacting]
     Active Substance: PREGABALIN
     Indication: Paranoid personality disorder
     Dosage: 150 MILLIGRAM, QD
     Route: 065
  3. AMISULPRIDE [Interacting]
     Active Substance: AMISULPRIDE
     Indication: Generalised anxiety disorder
     Dosage: 200 MILLIGRAM, ON DAYS 4-6
     Route: 065
  4. AMISULPRIDE [Interacting]
     Active Substance: AMISULPRIDE
     Indication: Paranoid personality disorder
     Dosage: 300 MILLIGRAM, ON DAY 7 AND DAY 8
     Route: 065
  5. AMISULPRIDE [Interacting]
     Active Substance: AMISULPRIDE
     Dosage: 400 MILLIGRAM, FROM DAYS 9-17
     Route: 065
  6. AMISULPRIDE [Interacting]
     Active Substance: AMISULPRIDE
     Dosage: 300 MILLIGRAM, QD
     Route: 065
  7. RIVOTRIL [Concomitant]
     Active Substance: CLONAZEPAM
     Indication: Generalised anxiety disorder
     Dosage: 4 MILLIGRAM, QD
     Route: 065
  8. ATARAX [Concomitant]
     Active Substance: HYDROXYZINE HYDROCHLORIDE
     Indication: Generalised anxiety disorder
     Dosage: 100 MILLIGRAM, QD
     Route: 065
  9. TRAZODONE HYDROCHLORIDE [Concomitant]
     Active Substance: TRAZODONE HYDROCHLORIDE
     Indication: Generalised anxiety disorder
     Dosage: 300 MILLIGRAM, QD
     Route: 065

REACTIONS (2)
  - Drug interaction [Recovering/Resolving]
  - Drug level increased [Recovering/Resolving]

NARRATIVE: CASE EVENT DATE: 20180101
